FAERS Safety Report 20438092 (Version 1)
Quarter: 2022Q1

REPORT INFORMATION
  Report Type: Spontaneous
  Country: US (occurrence: US)
  Receive Date: 20220207
  Receipt Date: 20220207
  Transmission Date: 20220423
  Serious: Yes (Other)
  Sender: FDA-Public Use
  Company Number: US-MYLANLABS-2022M1010497

PATIENT
  Sex: Female

DRUGS (16)
  1. IBUPROFEN [Suspect]
     Active Substance: IBUPROFEN
     Indication: Glycogen storage disease type II
     Dosage: UNK
     Route: 065
  2. IBUPROFEN [Suspect]
     Active Substance: IBUPROFEN
     Indication: Pain management
  3. TRAMADOL [Suspect]
     Active Substance: TRAMADOL
     Indication: Glycogen storage disease type II
     Dosage: UNK
     Route: 065
  4. TRAMADOL [Suspect]
     Active Substance: TRAMADOL
     Indication: Pain management
  5. CLONAZEPAM [Suspect]
     Active Substance: CLONAZEPAM
     Indication: Glycogen storage disease type II
     Dosage: UNK
     Route: 065
  6. CLONAZEPAM [Suspect]
     Active Substance: CLONAZEPAM
     Indication: Pain management
  7. TIZANIDINE [Suspect]
     Active Substance: TIZANIDINE
     Indication: Glycogen storage disease type II
     Dosage: UNK
     Route: 065
  8. TIZANIDINE [Suspect]
     Active Substance: TIZANIDINE
     Indication: Pain management
  9. GABAPENTIN [Suspect]
     Active Substance: GABAPENTIN
     Indication: Glycogen storage disease type II
     Dosage: UNK
     Route: 065
  10. GABAPENTIN [Suspect]
     Active Substance: GABAPENTIN
     Indication: Pain management
  11. KETOROLAC [Suspect]
     Active Substance: KETOROLAC TROMETHAMINE
     Indication: Glycogen storage disease type II
     Dosage: UNK
     Route: 065
  12. KETOROLAC [Suspect]
     Active Substance: KETOROLAC TROMETHAMINE
     Indication: Pain management
  13. OXYCODONE [Suspect]
     Active Substance: OXYCODONE
     Indication: Glycogen storage disease type II
     Dosage: UNK
     Route: 065
  14. OXYCODONE [Suspect]
     Active Substance: OXYCODONE
     Indication: Pain management
  15. CYCLOBENZAPRINE [Suspect]
     Active Substance: CYCLOBENZAPRINE
     Indication: Glycogen storage disease type II
     Dosage: UNK
     Route: 065
  16. CYCLOBENZAPRINE [Suspect]
     Active Substance: CYCLOBENZAPRINE
     Indication: Pain management

REACTIONS (2)
  - Drug ineffective [Unknown]
  - Off label use [Unknown]
